FAERS Safety Report 4909377-1 (Version None)
Quarter: 2006Q1

REPORT INFORMATION
  Report Type: 
  Country: None (occurrence: None)
  Receive Date: 20060210
  Receipt Date: 20060210
  Transmission Date: 20060701
  Serious: Yes (Hospitalization)
  Sender: FDA-Public Use
  Company Number: None

PATIENT
  Age: 78 Year
  Sex: Male
  Weight: 73 kg

DRUGS (4)
  1. LISINOPRIL [Suspect]
     Indication: CORONARY ARTERY DISEASE
  2. LISINOPRIL [Suspect]
     Indication: HYPERTENSION
  3. ISOSORBIDE [Suspect]
     Indication: CORONARY ARTERY DISEASE
  4. ISOSORBIDE [Suspect]
     Indication: HYPERTENSION

REACTIONS (2)
  - DIZZINESS [None]
  - SYNCOPE [None]
